FAERS Safety Report 22658025 (Version 1)
Quarter: 2023Q2

REPORT INFORMATION
  Report Type: Spontaneous
  Country: US (occurrence: US)
  Receive Date: 20230630
  Receipt Date: 20230630
  Transmission Date: 20230722
  Serious: No
  Sender: FDA-Public Use
  Company Number: US-Calliditas-2023CAL00812

PATIENT
  Age: 75 Year
  Sex: Male

DRUGS (1)
  1. TARPEYO [Suspect]
     Active Substance: BUDESONIDE
     Indication: Haematuria
     Route: 048
     Dates: start: 20230317

REACTIONS (7)
  - Drug ineffective [Unknown]
  - Asthenia [Unknown]
  - Dyspnoea [Unknown]
  - Performance status decreased [Unknown]
  - Muscular weakness [Unknown]
  - Fatigue [Unknown]
  - Off label use [Unknown]
